FAERS Safety Report 4608743-1 (Version None)
Quarter: 2005Q1

REPORT INFORMATION
  Report Type: 
  Country: None (occurrence: None)
  Receive Date: 20050309
  Receipt Date: 20050222
  Transmission Date: 20050727
  Serious: Yes (Life-Threatening, Other)
  Sender: FDA-Public Use
  Company Number: GBS040715174

PATIENT
  Age: 73 Year
  Sex: Male
  Weight: 65 kg

DRUGS (5)
  1. XIGRIS [Suspect]
     Indication: SEPSIS
     Dosage: 24 UG/KG/HR
     Dates: start: 20040614, end: 20040615
  2. CO-AMOXICLAV [Concomitant]
  3. HYDROCORTISONE [Concomitant]
  4. CIPROFLOXACIN [Concomitant]
  5. NORADRENALINE [Concomitant]

REACTIONS (7)
  - ACUTE MYOCARDIAL INFARCTION [None]
  - BACTERIAL SEPSIS [None]
  - CONFUSIONAL STATE [None]
  - EPISTAXIS [None]
  - HYDRONEPHROSIS [None]
  - MOUTH HAEMORRHAGE [None]
  - MULTI-ORGAN FAILURE [None]
